FAERS Safety Report 6345947-4 (Version None)
Quarter: 2009Q3

REPORT INFORMATION
  Report Type: 
  Country: None (occurrence: None)
  Receive Date: 20090909
  Receipt Date: 20090825
  Transmission Date: 20100115
  Serious: No
  Sender: FDA-Public Use
  Company Number: ZA-GENENTECH-285727

PATIENT
  Sex: Female

DRUGS (2)
  1. MABTHERA [Suspect]
     Indication: NON-HODGKIN'S LYMPHOMA
     Dosage: UNK
     Route: 065
     Dates: start: 20070727, end: 20090310
  2. SINEMET [Concomitant]
     Indication: PARKINSON'S DISEASE

REACTIONS (1)
  - PARKINSON'S DISEASE [None]
